FAERS Safety Report 11134229 (Version 1)
Quarter: 2015Q2

REPORT INFORMATION
  Report Type: Spontaneous
  Country: FR (occurrence: US)
  Receive Date: 20150524
  Receipt Date: 20150524
  Transmission Date: 20150821
  Serious: No
  Sender: FDA-Public Use
  Company Number: FR-JNJFOC-20131200251

PATIENT
  Sex: Female

DRUGS (1)
  1. CONCERTA LP [Suspect]
     Active Substance: METHYLPHENIDATE HYDROCHLORIDE
     Indication: PRODUCT USED FOR UNKNOWN INDICATION
     Dosage: 36 MG IN THE MORNING AND 18 MG AT MIDDAY
     Route: 048

REACTIONS (1)
  - Inappropriate schedule of drug administration [Unknown]
